FAERS Safety Report 6836501-6 (Version None)
Quarter: 2010Q3

REPORT INFORMATION
  Report Type: 
  Country: None (occurrence: None)
  Receive Date: 20100713
  Receipt Date: 20100702
  Transmission Date: 20110219
  Serious: Yes (Other)
  Sender: FDA-Public Use
  Company Number: DE-WYE-H15979710

PATIENT
  Age: 66 Year
  Sex: Female
  Weight: 75 kg

DRUGS (8)
  1. PANTOZOL [Suspect]
     Indication: GASTRIC ULCER
     Route: 048
     Dates: start: 20100617, end: 20100625
  2. PANTOZOL [Suspect]
     Indication: HELICOBACTER INFECTION
  3. GLIMEPIRIDE [Concomitant]
     Route: 048
  4. ENALAPRIL MALEATE [Concomitant]
     Route: 048
  5. METFORMIN [Concomitant]
     Route: 048
  6. CLARITHROMYCIN [Suspect]
     Indication: GASTRIC ULCER
     Route: 048
     Dates: start: 20100617, end: 20100625
  7. CLARITHROMYCIN [Suspect]
     Indication: HELICOBACTER INFECTION
  8. AMOXICILLIN [Suspect]
     Indication: HELICOBACTER INFECTION
     Route: 048
     Dates: start: 20100617, end: 20100625

REACTIONS (2)
  - HYPOGLYCAEMIA [None]
  - RENAL FAILURE ACUTE [None]
